FAERS Safety Report 7009098-8 (Version None)
Quarter: 2010Q3

REPORT INFORMATION
  Report Type: 
  Country: None (occurrence: None)
  Receive Date: 20100923
  Receipt Date: 20100910
  Transmission Date: 20110219
  Serious: Yes (Other)
  Sender: FDA-Public Use
  Company Number: US-RB-013942-10

PATIENT
  Age: 53 Year
  Sex: Male

DRUGS (1)
  1. MUCINEX D [Suspect]
     Dosage: PATIENT TOOK 4 TABLETS IN TOTAL.
     Route: 048
     Dates: start: 20100201

REACTIONS (3)
  - CONVULSION [None]
  - HEAD INJURY [None]
  - LOSS OF CONSCIOUSNESS [None]
